FAERS Safety Report 14715087 (Version 1)
Quarter: 2018Q2

REPORT INFORMATION
  Report Type: Spontaneous
  Country: US (occurrence: US)
  Receive Date: 20180404
  Receipt Date: 20180404
  Transmission Date: 20180711
  Serious: No
  Sender: FDA-Public Use
  Company Number: US-BAUSCH-BL-2017-009148

PATIENT
  Age: 68 Year
  Sex: Female

DRUGS (5)
  1. RETIN-A [Suspect]
     Active Substance: TRETINOIN
     Indication: ACNE
     Route: 061
  2. RETIN-A [Suspect]
     Active Substance: TRETINOIN
     Indication: PROPHYLAXIS
     Route: 061
  3. RETIN-A [Suspect]
     Active Substance: TRETINOIN
     Route: 061
  4. RETIN-A [Suspect]
     Active Substance: TRETINOIN
     Indication: ACNE
     Route: 061
  5. RETIN-A [Suspect]
     Active Substance: TRETINOIN
     Indication: PROPHYLAXIS
     Route: 061

REACTIONS (2)
  - Off label use [Unknown]
  - Product quality issue [Unknown]
